FAERS Safety Report 21606439 (Version 11)
Quarter: 2024Q3

REPORT INFORMATION
  Report Type: Spontaneous
  Country: BR (occurrence: BR)
  Receive Date: 20221117
  Receipt Date: 20240821
  Transmission Date: 20241017
  Serious: Yes (Hospitalization, Other)
  Sender: CELLTRION
  Company Number: BR-CELLTRION INC.-2022BR019300

PATIENT

DRUGS (13)
  1. INFLIXIMAB [Suspect]
     Active Substance: INFLIXIMAB
     Indication: Colitis ulcerative
     Dosage: 3 AMPOULES EVERY 2 MONTHS
     Route: 042
     Dates: start: 20220912
  2. INFLIXIMAB [Suspect]
     Active Substance: INFLIXIMAB
     Dosage: 3 AMPOULES EVERY 2 MONTHS
     Route: 042
     Dates: start: 20230113
  3. INFLIXIMAB [Suspect]
     Active Substance: INFLIXIMAB
     Dosage: 3 AMPOULES EVERY 2 MONTHS
     Route: 042
     Dates: start: 20230314
  4. INFLIXIMAB [Suspect]
     Active Substance: INFLIXIMAB
     Dosage: 3 AMPOULES EVERY 2 MONTHS
     Route: 042
     Dates: start: 20230601
  5. INFLIXIMAB [Suspect]
     Active Substance: INFLIXIMAB
     Dosage: 2 AMPOULES EVERY 2 MONTHS
     Route: 042
  6. INFLIXIMAB [Suspect]
     Active Substance: INFLIXIMAB
     Dosage: 2 AMPOULES EVERY 2 MONTHS
     Route: 042
     Dates: start: 20240625
  7. INFLIXIMAB [Suspect]
     Active Substance: INFLIXIMAB
     Dosage: 2 AMPOULES EVERY 2 MONTHS
     Route: 042
     Dates: start: 20240311
  8. INFLIXIMAB [Suspect]
     Active Substance: INFLIXIMAB
     Dosage: USED TO TAKE 2.5 AMPOULES (WAS 2.5 AMPOULES EVERY 2 MONTHS)./2.5 AMPOULES (250 MG) INTRAVENOUSLY
     Route: 042
     Dates: start: 20220912
  9. AZATHIOPRINE [Concomitant]
     Active Substance: AZATHIOPRINE
     Indication: Colitis ulcerative
     Dosage: 50 MG/1 PILL PER DAY
     Route: 048
     Dates: start: 2007
  10. PREDNISONE [Concomitant]
     Active Substance: PREDNISONE
     Indication: Colitis ulcerative
     Dosage: 1 PILL PER DAY; START: 15 YEARS AGO
     Route: 048
  11. URSODIOL [Concomitant]
     Active Substance: URSODIOL
     Indication: Chronic hepatitis
     Dosage: 2 PILLS PER DAY
     Route: 048
     Dates: start: 2012
  12. OMEPRAZOLE [Concomitant]
     Active Substance: OMEPRAZOLE
     Indication: Gastrointestinal disorder prophylaxis
     Dosage: 1 PILL A DAY
     Route: 048
     Dates: start: 2007
  13. URSODIOL [Concomitant]
     Active Substance: URSODIOL
     Indication: Chronic hepatitis
     Dosage: 300 MG/2 PILLS A DAY
     Route: 048
     Dates: start: 2012

REACTIONS (21)
  - Colitis ulcerative [Recovering/Resolving]
  - Dehydration [Recovering/Resolving]
  - Hypotension [Unknown]
  - Anaemia [Recovering/Resolving]
  - Sluggishness [Recovered/Resolved]
  - Rales [Recovering/Resolving]
  - Head discomfort [Unknown]
  - Asthenia [Recovered/Resolved]
  - Infusion site pain [Recovered/Resolved]
  - Infusion site pain [Recovered/Resolved]
  - Infusion site pain [Unknown]
  - Headache [Recovered/Resolved]
  - Hypotension [Recovered/Resolved]
  - Blood pressure decreased [Unknown]
  - Somnolence [Recovered/Resolved]
  - Influenza like illness [Unknown]
  - Influenza [Unknown]
  - Impaired healing [Recovering/Resolving]
  - Vertigo [Unknown]
  - Dizziness [Unknown]
  - Intentional dose omission [Unknown]

NARRATIVE: CASE EVENT DATE: 20221104
